FAERS Safety Report 9721437 (Version 2)
Quarter: 2014Q1

REPORT INFORMATION
  Report Type: Spontaneous
  Country: US (occurrence: US)
  Receive Date: 20131129
  Receipt Date: 20140128
  Transmission Date: 20141002
  Serious: Yes (Other)
  Sender: FDA-Public Use
  Company Number: US-009507513-1311USA011025

PATIENT
  Age: 17 Year
  Sex: Female
  Weight: 38.7 kg

DRUGS (3)
  1. FUROSEMIDE [Suspect]
  2. TACROLIMUS [Suspect]
  3. TOBRAMYCIN [Suspect]

REACTIONS (2)
  - Renal failure acute [Recovering/Resolving]
  - Renal tubular necrosis [Recovering/Resolving]
